FAERS Safety Report 7562710-7 (Version None)
Quarter: 2011Q2

REPORT INFORMATION
  Report Type: 
  Country: None (occurrence: None)
  Receive Date: 20110622
  Receipt Date: 20110608
  Transmission Date: 20111010
  Serious: Yes (Death)
  Sender: FDA-Public Use
  Company Number: US-MYLANLABS-2011S1011929

PATIENT
  Age: 51 Year
  Sex: Female

DRUGS (1)
  1. FENTANYL-100 [Suspect]
     Indication: SUICIDE ATTEMPT
     Dosage: 100 MICROG/H TRANSDERMAL PATCH
     Route: 048

REACTIONS (4)
  - HYPOXIA [None]
  - LOSS OF CONSCIOUSNESS [None]
  - INCORRECT ROUTE OF DRUG ADMINISTRATION [None]
  - HYPOXIC-ISCHAEMIC ENCEPHALOPATHY [None]
